FAERS Safety Report 22727172 (Version 3)
Quarter: 2023Q4

REPORT INFORMATION
  Report Type: Report from Study
  Country: BR (occurrence: BR)
  Receive Date: 20230720
  Receipt Date: 20231213
  Transmission Date: 20240110
  Serious: Yes (Other)
  Sender: FDA-Public Use
  Company Number: BR-002147023-NVSC2023BR158976

PATIENT
  Sex: Female

DRUGS (4)
  1. COSENTYX [Suspect]
     Active Substance: SECUKINUMAB
     Indication: Ankylosing spondylitis
     Dosage: UNK (STARTED IN JAN/FEB 2023)
     Route: 065
     Dates: start: 2023
  2. COSENTYX [Suspect]
     Active Substance: SECUKINUMAB
     Indication: Arthritis
     Dosage: UNK, QW (INDUCTION DOSES AGAIN)
     Route: 065
     Dates: end: 20230713
  3. COSENTYX [Suspect]
     Active Substance: SECUKINUMAB
     Dosage: 1 DOSAGE FORM, QW
     Route: 065
  4. COSENTYX [Suspect]
     Active Substance: SECUKINUMAB
     Dosage: 1 DOSAGE FORM, QMO
     Route: 065

REACTIONS (19)
  - Breast cancer [Unknown]
  - Weight increased [Unknown]
  - Abdominal distension [Not Recovered/Not Resolved]
  - Peripheral swelling [Not Recovered/Not Resolved]
  - Breast swelling [Not Recovered/Not Resolved]
  - Gait disturbance [Unknown]
  - Dysstasia [Unknown]
  - Limb discomfort [Unknown]
  - Oedema peripheral [Not Recovered/Not Resolved]
  - Confusional state [Unknown]
  - Depressed mood [Unknown]
  - Malaise [Unknown]
  - Emotional distress [Not Recovered/Not Resolved]
  - Influenza [Unknown]
  - Endocrine disorder [Unknown]
  - Pain in extremity [Unknown]
  - Nervousness [Unknown]
  - Stress [Unknown]
  - Drug hypersensitivity [Unknown]
